FAERS Safety Report 5714885-X (Version None)
Quarter: 2008Q2

REPORT INFORMATION
  Report Type: 
  Country: None (occurrence: None)
  Receive Date: 20080423
  Receipt Date: 20070921
  Transmission Date: 20081010
  Serious: Yes (Death)
  Sender: FDA-Public Use
  Company Number: US-BAYER-US-2007-033585

PATIENT

DRUGS (1)
  1. LEUKINE [Suspect]

REACTIONS (2)
  - ARRHYTHMIA [None]
  - DISEASE PROGRESSION [None]
